FAERS Safety Report 6304506-X (Version None)
Quarter: 2009Q3

REPORT INFORMATION
  Report Type: 
  Country: None (occurrence: None)
  Receive Date: 20090811
  Receipt Date: 20090804
  Transmission Date: 20100115
  Serious: Yes (Hospitalization)
  Sender: FDA-Public Use
  Company Number: BR-ROCHE-648171

PATIENT
  Sex: Female
  Weight: 43.6 kg

DRUGS (11)
  1. MYCOPHENOLATE MOFETIL [Suspect]
     Indication: DRUG USE FOR UNKNOWN INDICATION
     Route: 065
     Dates: start: 20090625, end: 20090804
  2. BLINDED OCRELIZUMAB [Suspect]
     Indication: LUPUS NEPHRITIS
     Dosage: FORM: INFUSION (AS PER PROTOCOL), FREQUENCY: REPORTED AS 'MID'.
     Route: 042
     Dates: start: 20090610, end: 20090624
  3. CAPTOPRIL [Concomitant]
     Dates: start: 20090515
  4. FUROSEMIDE [Concomitant]
     Dates: start: 20090515
  5. PROPRANOLOL [Concomitant]
     Dates: start: 20090518
  6. HYDROXYCHLOROQUINE SULFATE [Concomitant]
     Dosage: DRUG NAME: HYDROXICHLOROQUINE
     Dates: start: 20090515
  7. PREDNISONE [Concomitant]
     Dates: start: 20090804
  8. VITAMIN D3 [Concomitant]
     Dosage: DRUG NAME: D3 VITAMIN
     Dates: start: 20090610
  9. CALCIUM [Concomitant]
     Dates: start: 20090610
  10. SIMVASTATIN [Concomitant]
     Dosage: DRUG NAME: SINVASTATIN.
     Dates: start: 20090710
  11. ACETAMINOPHEN [Concomitant]
     Dates: start: 20090703

REACTIONS (1)
  - FEBRILE NEUTROPENIA [None]
